FAERS Safety Report 5289227-7 (Version None)
Quarter: 2007Q1

REPORT INFORMATION
  Report Type: 
  Country: None (occurrence: None)
  Receive Date: 20070124
  Receipt Date: 20060817
  Transmission Date: 20070707
  Serious: Yes (Other)
  Sender: FDA-Public Use
  Company Number: HQWYE688418AUG06

PATIENT
  Age: 75 Year
  Sex: Female
  Weight: 84.9 kg

DRUGS (9)
  1. CORDARONE [Suspect]
     Dosage: DOSE UNKNOWN, ORAL
     Route: 048
     Dates: start: 20030401, end: 20050101
  2. POTASSIUM (POTASSIUM) [Concomitant]
  3. LASIX [Concomitant]
  4. ASPIRIN [Concomitant]
  5. COUMADIN [Concomitant]
  6. METOPROLOL TARTRATE [Concomitant]
  7. ATACAND [Concomitant]
  8. TRICOR [Concomitant]
  9. INSULIN (INSULIN) [Concomitant]

REACTIONS (1)
  - DYSPNOEA EXERTIONAL [None]
